FAERS Safety Report 23905093 (Version 1)
Quarter: 2024Q2

REPORT INFORMATION
  Report Type: Spontaneous
  Country: US (occurrence: US)
  Receive Date: 20240527
  Receipt Date: 20240527
  Transmission Date: 20240716
  Serious: No
  Sender: FDA-Public Use
  Company Number: US-SANOFI-02050967

PATIENT
  Sex: Female

DRUGS (1)
  1. RENVELA [Suspect]
     Active Substance: SEVELAMER CARBONATE
     Indication: Chronic kidney disease
     Dosage: 800 MG, TID

REACTIONS (2)
  - Malaise [Unknown]
  - Asthenia [Unknown]
